FAERS Safety Report 5990929-5 (Version None)
Quarter: 2008Q4

REPORT INFORMATION
  Report Type: 
  Country: None (occurrence: None)
  Receive Date: 20081211
  Receipt Date: 20071107
  Transmission Date: 20090506
  Serious: No
  Sender: FDA-Public Use
  Company Number: US-AMGEN-KDL248455

PATIENT
  Sex: Female

DRUGS (8)
  1. ENBREL [Suspect]
     Indication: RHEUMATOID ARTHRITIS
     Route: 058
     Dates: start: 20071004
  2. METHOTREXATE [Concomitant]
     Dates: start: 19880101
  3. CALCIUM [Concomitant]
  4. VITAMIN B [Concomitant]
  5. PREDNISONE TAB [Concomitant]
  6. CELEBREX [Concomitant]
  7. PROTONIX [Concomitant]
  8. MULTI-VITAMINS [Concomitant]

REACTIONS (4)
  - INJECTION SITE ERYTHEMA [None]
  - INJECTION SITE PAIN [None]
  - INJECTION SITE PRURITUS [None]
  - RASH MACULAR [None]
